FAERS Safety Report 4650482-5 (Version None)
Quarter: 2005Q2

REPORT INFORMATION
  Report Type: 
  Country: None (occurrence: None)
  Receive Date: 20050502
  Receipt Date: 20041230
  Transmission Date: 20051028
  Serious: Yes (Disabling)
  Sender: FDA-Public Use
  Company Number: US-MERCK-0501USA00042

PATIENT
  Age: 55 Year
  Sex: Female

DRUGS (6)
  1. VIOXX [Suspect]
     Indication: ARTHRITIS
     Route: 048
  2. DARVOCET-N 100 [Concomitant]
     Route: 048
     Dates: end: 20040601
  3. ATENOLOL [Concomitant]
     Route: 048
  4. HYDRODIURIL [Concomitant]
     Route: 048
  5. LEXAPRO [Concomitant]
     Route: 048
  6. GLUCOPHAGE [Concomitant]
     Route: 048

REACTIONS (3)
  - REFUSAL OF TREATMENT BY PATIENT [None]
  - ROAD TRAFFIC ACCIDENT [None]
  - TRANSIENT ISCHAEMIC ATTACK [None]
